FAERS Safety Report 12521878 (Version 2)
Quarter: 2016Q4

REPORT INFORMATION
  Report Type: Spontaneous
  Country: US (occurrence: US)
  Receive Date: 20160701
  Receipt Date: 20161026
  Transmission Date: 20170207
  Serious: Yes (Other)
  Sender: FDA-Public Use
  Company Number: US-BAYER-2016-122689

PATIENT
  Age: 51 Year
  Sex: Female

DRUGS (18)
  1. SORAFENIB (RAF KINASE INHIBITOR) [Suspect]
     Active Substance: SORAFENIB
     Indication: BREAST CANCER
     Dosage: UNK (COURSE 1)
  2. SORAFENIB (RAF KINASE INHIBITOR) [Suspect]
     Active Substance: SORAFENIB
     Indication: BREAST CANCER
     Dosage: LOWER DOSES (COURSE 8)
  3. VORINOSTAT [Suspect]
     Active Substance: VORINOSTAT
     Dosage: DOSE ALTERED
  4. DENOSUMAB [Concomitant]
     Active Substance: DENOSUMAB
  5. VORINOSTAT [Suspect]
     Active Substance: VORINOSTAT
  6. EVEROLIMUS [Concomitant]
     Active Substance: EVEROLIMUS
  7. DENOSUMAB [Concomitant]
     Active Substance: DENOSUMAB
     Dosage: DOSE INCREASED
  8. VORINOSTAT [Suspect]
     Active Substance: VORINOSTAT
     Dosage: DOSE INCREASED
  9. SORAFENIB (RAF KINASE INHIBITOR) [Suspect]
     Active Substance: SORAFENIB
     Indication: BREAST CANCER
     Dosage: SAME LEVEL AS COURSE 5
  10. VORINOSTAT [Suspect]
     Active Substance: VORINOSTAT
     Dosage: LOWER DOSES
  11. ABRAXANE [Suspect]
     Active Substance: PACLITAXEL
  12. SORAFENIB (RAF KINASE INHIBITOR) [Suspect]
     Active Substance: SORAFENIB
     Indication: BREAST CANCER
     Dosage: COURSE 2, SHORTENED THE LENGTH OF TREATMENT FROM 6 WEEKS TO 3 WEEKS
  13. SORAFENIB (RAF KINASE INHIBITOR) [Suspect]
     Active Substance: SORAFENIB
     Indication: BREAST CANCER
     Dosage: DECREASED BY 25% (COURSE 5)
  14. ABRAXANE [Suspect]
     Active Substance: PACLITAXEL
     Dosage: LOWER DOSES
  15. SORAFENIB (RAF KINASE INHIBITOR) [Suspect]
     Active Substance: SORAFENIB
     Indication: BREAST CANCER
     Dosage: DOSE INCREASED (COURSE 3 AND 4)
  16. SORAFENIB (RAF KINASE INHIBITOR) [Suspect]
     Active Substance: SORAFENIB
     Indication: BREAST CANCER
     Dosage: DOSE INCREASED (COURSE 7)
  17. CETUXIMAB [Concomitant]
     Active Substance: CETUXIMAB
  18. DENOSUMAB [Concomitant]
     Active Substance: DENOSUMAB
     Dosage: DOSE REDUCED

REACTIONS (11)
  - Gastrointestinal toxicity [None]
  - Nausea [None]
  - Breast cancer female [None]
  - Bone marrow toxicity [None]
  - Anaemia [None]
  - Thrombocytopenia [None]
  - Neutropenia [None]
  - Off label use [None]
  - Diarrhoea [None]
  - Vomiting [None]
  - Asthenia [None]
